FAERS Safety Report 9121150 (Version 2)
Quarter: 2013Q1

REPORT INFORMATION
  Report Type: Spontaneous
  Country: GB (occurrence: GB)
  Receive Date: 20130226
  Receipt Date: 20130325
  Transmission Date: 20140127
  Serious: Yes (Other)
  Sender: FDA-Public Use
  Company Number: GB-TEVA-388170ISR

PATIENT
  Age: 42 Year
  Sex: Female

DRUGS (6)
  1. DIAZEPAM [Suspect]
     Indication: FEELING OF RELAXATION
     Dosage: 8 MILLIGRAM DAILY;
     Dates: start: 201207
  2. LEVOTHYROXINE [Interacting]
     Indication: HYPOTHYROIDISM
     Dosage: DOSE NOT STATED
     Route: 065
  3. KEPPRA [Interacting]
     Indication: CEREBRAL THROMBOSIS
     Dosage: 3 TABLET DAILY; 3 TABLETS A DAY
  4. ACETYLSALICYLIC ACID [Interacting]
     Indication: PRODUCT USED FOR UNKNOWN INDICATION
     Dosage: DOSE NOT STATED
     Route: 065
  5. SERTRALINE [Concomitant]
  6. TEMAZEPAM [Concomitant]

REACTIONS (16)
  - Hallucination, visual [Unknown]
  - Palpitations [Unknown]
  - Hyperhidrosis [Unknown]
  - Abdominal pain upper [Unknown]
  - Malaise [Unknown]
  - Vomiting [Unknown]
  - Diarrhoea [Unknown]
  - Insomnia [Unknown]
  - Feeling abnormal [Unknown]
  - Weight decreased [Unknown]
  - Drug interaction [Unknown]
  - Abdominal discomfort [Unknown]
  - Drug withdrawal syndrome [Unknown]
  - Convulsion [Unknown]
  - Suicidal ideation [Unknown]
  - Insomnia [Unknown]
